FAERS Safety Report 13878716 (Version 1)
Quarter: 2017Q3

REPORT INFORMATION
  Report Type: Spontaneous
  Country: CA (occurrence: CA)
  Receive Date: 20170817
  Receipt Date: 20170817
  Transmission Date: 20171127
  Serious: Yes (Hospitalization, Other)
  Sender: FDA-Public Use
  Company Number: CA-TEVA-796236ACC

PATIENT
  Age: 58 Year
  Sex: Female

DRUGS (2)
  1. CLARITHROMYCIN. [Concomitant]
     Active Substance: CLARITHROMYCIN
  2. TEVA-DOXYCYCLINE [Suspect]
     Active Substance: DOXYCYCLINE
     Indication: LUNG INFECTION
     Route: 048

REACTIONS (6)
  - Pruritus [Recovered/Resolved]
  - Oral discomfort [Recovered/Resolved]
  - Oral mucosal erythema [Recovered/Resolved]
  - Lip swelling [Recovered/Resolved]
  - Rash macular [Recovered/Resolved]
  - Vulvovaginal mycotic infection [Recovered/Resolved]
